FAERS Safety Report 10504763 (Version 1)
Quarter: 2014Q3

REPORT INFORMATION
  Report Type: Spontaneous
  Country: US (occurrence: None)
  Receive Date: 20140926
  Receipt Date: 20140926
  Transmission Date: 20150326
  Serious: Yes (Hospitalization)
  Sender: FDA-Public Use
  Company Number: 1000069461

PATIENT
  Age: 70 Year
  Sex: Female
  Weight: 76 kg

DRUGS (6)
  1. EFFEXOR [Concomitant]
     Active Substance: VENLAFAXINE HYDROCHLORIDE
  2. DIOVAN [Concomitant]
     Active Substance: VALSARTAN
  3. LINZESS [Suspect]
     Active Substance: LINACLOTIDE
     Indication: CONSTIPATION
     Dosage: 145 MCG (145 MCG, 1 IN 1 D)
     Dates: start: 20140718, end: 201407
  4. ESTRADIOL (ESTRADIOL) (ESTRADIOL) [Concomitant]
  5. PRAMIPEXOLE (PRAMIPEXOLE) (PRAMIPEXOLE) [Concomitant]
  6. OMEPRAZOLE (OMEPRAZOLE) (OMEPRAZOLE) [Concomitant]
     Active Substance: OMEPRAZOLE

REACTIONS (3)
  - Dehydration [None]
  - Abdominal pain [None]
  - Faecal incontinence [None]

NARRATIVE: CASE EVENT DATE: 20140719
